FAERS Safety Report 6988171-4 (Version None)
Quarter: 2010Q3

REPORT INFORMATION
  Report Type: 
  Country: None (occurrence: None)
  Receive Date: 20100916
  Receipt Date: 20100908
  Transmission Date: 20110219
  Serious: Yes (Other)
  Sender: FDA-Public Use
  Company Number: DE-SANOFI-AVENTIS-2010SA055297

PATIENT
  Age: 21 Year
  Sex: Female

DRUGS (23)
  1. FLUDARABINE PHOSPHATE [Suspect]
     Route: 065
     Dates: start: 20061101
  2. SORAFENIB [Suspect]
     Route: 048
     Dates: start: 20080201
  3. SORAFENIB [Suspect]
     Route: 048
  4. PREDNISOLONE [Suspect]
     Indication: IMMUNOSUPPRESSION
     Route: 065
  5. DAUNORUBICIN HCL [Suspect]
     Route: 065
     Dates: start: 20060101
  6. CYTARABINE [Suspect]
     Route: 065
     Dates: start: 20060101
  7. ARA ^CELL^ [Suspect]
     Route: 065
     Dates: start: 20060101
  8. BUSULFAN [Suspect]
     Route: 065
     Dates: start: 20060501
  9. CYCLOPHOSPHAMIDE [Suspect]
     Route: 065
     Dates: start: 20060501
  10. ANTI-THYMOCYTE GLOBULIN NOS [Suspect]
     Route: 065
     Dates: start: 20060501
  11. CYTARABINE [Suspect]
     Route: 065
     Dates: start: 20061101
  12. IDARUBICIN HCL [Suspect]
     Route: 065
     Dates: start: 20061101
  13. CYCLOSPORINE [Suspect]
     Indication: PROPHYLAXIS AGAINST GRAFT VERSUS HOST DISEASE
     Route: 065
     Dates: start: 20060501
  14. CYCLOSPORINE [Suspect]
     Indication: IMMUNOSUPPRESSION
     Route: 065
     Dates: start: 20060501
  15. CYCLOSPORINE [Suspect]
     Route: 065
  16. CYCLOSPORINE [Suspect]
     Route: 065
  17. CYCLOSPORINE [Suspect]
     Route: 065
     Dates: start: 20061101
  18. CYCLOSPORINE [Suspect]
     Route: 065
     Dates: start: 20061101
  19. MYCOPHENOLATE MOFETIL [Suspect]
     Indication: IMMUNOSUPPRESSION
     Route: 065
  20. DACLIZUMAB [Suspect]
     Indication: IMMUNOSUPPRESSION
     Route: 065
  21. RITUXIMAB [Suspect]
     Indication: IMMUNOSUPPRESSION
     Route: 065
  22. METHOTREXATE [Concomitant]
     Indication: PROPHYLAXIS AGAINST GRAFT VERSUS HOST DISEASE
     Dates: start: 20060501
  23. BLOOD AND BLOOD FORMING ORGANS [Concomitant]

REACTIONS (11)
  - ACUTE GRAFT VERSUS HOST DISEASE [None]
  - DIARRHOEA [None]
  - FUNGAL INFECTION [None]
  - ILEAL PERFORATION [None]
  - ILEAL STENOSIS [None]
  - ILEUS [None]
  - LEUKOPENIA [None]
  - MUCORMYCOSIS [None]
  - PERITONEAL INFECTION [None]
  - RASH [None]
  - THROMBOCYTOPENIA [None]
